FAERS Safety Report 5213957-6 (Version None)
Quarter: 2007Q1

REPORT INFORMATION
  Report Type: 
  Country: None (occurrence: None)
  Receive Date: 20070122
  Receipt Date: 20070110
  Transmission Date: 20070707
  Serious: Yes (Hospitalization)
  Sender: FDA-Public Use
  Company Number: PHHO2007JP01103

PATIENT
  Age: 76 Year
  Sex: Female

DRUGS (3)
  1. DIOVAN [Suspect]
     Indication: HYPERTENSION
     Dosage: 80 MG, QD
     Route: 048
     Dates: start: 20031013
  2. LASIX [Concomitant]
     Indication: CARDIAC FAILURE
  3. LIPITOR [Concomitant]
     Indication: HYPERCHOLESTEROLAEMIA

REACTIONS (3)
  - PERIPHERAL COLDNESS [None]
  - PERIPHERAL EMBOLISM [None]
  - RENAL EMBOLISM [None]
